FAERS Safety Report 25141092 (Version 1)
Quarter: 2025Q2

REPORT INFORMATION
  Report Type: Spontaneous
  Country: US (occurrence: None)
  Receive Date: 20250330
  Receipt Date: 20250330
  Transmission Date: 20250717
  Serious: Yes (Disabling)
  Sender: FDA-CTU
  Company Number: None

PATIENT
  Age: 57 Year
  Sex: Female
  Weight: 77 kg

DRUGS (1)
  1. DONEPEZIL [Suspect]
     Active Substance: DONEPEZIL
     Indication: Drug therapy
     Dates: start: 20220510, end: 20230920

REACTIONS (6)
  - Cognitive disorder [None]
  - Cerebral atrophy [None]
  - Speech disorder [None]
  - Mobility decreased [None]
  - Affective disorder [None]
  - Enzyme abnormality [None]

NARRATIVE: CASE EVENT DATE: 20220515
